FAERS Safety Report 8245630-4 (Version None)
Quarter: 2012Q1

REPORT INFORMATION
  Report Type: 
  Country: None (occurrence: None)
  Receive Date: 20120330
  Receipt Date: 20120321
  Transmission Date: 20120608
  Serious: Yes (Other)
  Sender: FDA-Public Use
  Company Number: CH-BIOGENIDEC-2012BI008776

PATIENT
  Age: 18 Year
  Sex: Male

DRUGS (2)
  1. AVONEX [Suspect]
     Indication: MULTIPLE SCLEROSIS
     Route: 030
     Dates: start: 19981129
  2. ISOTRETINOIN [Concomitant]
     Indication: ACNE

REACTIONS (2)
  - EPILEPSY [None]
  - GENERAL PHYSICAL CONDITION ABNORMAL [None]
